FAERS Safety Report 6703042-6 (Version None)
Quarter: 2010Q2

REPORT INFORMATION
  Report Type: 
  Country: None (occurrence: None)
  Receive Date: 20100427
  Receipt Date: 20100416
  Transmission Date: 20101027
  Serious: Yes (Other)
  Sender: FDA-Public Use
  Company Number: 2010SP008778

PATIENT
  Age: 57 Year
  Sex: Male

DRUGS (9)
  1. PEG-INTRON [Suspect]
     Indication: HEPATITIS C
     Dosage: 0.4 ML;QW;SC
     Route: 058
     Dates: start: 20100115
  2. RIBAVIRIN [Suspect]
     Indication: HEPATITIS C
     Dosage: 1000 MG;QD;PO
     Route: 048
     Dates: start: 20100115
  3. ZOLOFT [Suspect]
     Indication: MAJOR DEPRESSION
  4. TRAMADOL HCL [Suspect]
     Indication: MAJOR DEPRESSION
  5. TRAMADOL HCL [Suspect]
     Indication: PAIN
  6. FLONASE [Concomitant]
  7. ADVAIR DISKUS 100/50 [Concomitant]
  8. LORAZEPAM [Concomitant]
  9. = [Concomitant]

REACTIONS (28)
  - AGITATION [None]
  - ANXIETY [None]
  - BACK DISORDER [None]
  - BACK PAIN [None]
  - CONDITION AGGRAVATED [None]
  - DECREASED APPETITE [None]
  - DRY SKIN [None]
  - EUPHORIC MOOD [None]
  - FATIGUE [None]
  - HYPOMANIA [None]
  - INFLUENZA LIKE ILLNESS [None]
  - INSOMNIA [None]
  - INTERVERTEBRAL DISC INJURY [None]
  - MAJOR DEPRESSION [None]
  - MANIA [None]
  - MOOD SWINGS [None]
  - NAUSEA [None]
  - OPTIC DISC DRUSEN [None]
  - PAIN [None]
  - PAIN IN EXTREMITY [None]
  - PSYCHOMOTOR HYPERACTIVITY [None]
  - RETINAL DEGENERATION [None]
  - SCIATICA [None]
  - SUICIDAL IDEATION [None]
  - VISION BLURRED [None]
  - VISUAL FIELD DEFECT [None]
  - VITREOUS FLOATERS [None]
  - VOMITING [None]
